FAERS Safety Report 17138197 (Version 1)
Quarter: 2019Q4

REPORT INFORMATION
  Report Type: Spontaneous
  Country: SE (occurrence: SE)
  Receive Date: 20191211
  Receipt Date: 20191211
  Transmission Date: 20200122
  Serious: Yes (Hospitalization)
  Sender: FDA-Public Use
  Company Number: SE-TEVA-2019-SE-1148914

PATIENT
  Age: 35 Year
  Sex: Female

DRUGS (4)
  1. MELATONIN [Suspect]
     Active Substance: MELATONIN
     Dosage: ^2 MELATONIN^
     Route: 048
     Dates: start: 20180815, end: 20180815
  2. ALVEDON [Suspect]
     Active Substance: ACETAMINOPHEN
     Dosage: ^4 ALVEDON^
     Route: 048
     Dates: start: 20180815, end: 20180815
  3. OLANZAPINE. [Suspect]
     Active Substance: OLANZAPINE
     Dosage: ^2 OLANZAPIN^
     Route: 048
     Dates: start: 20180815, end: 20180815
  4. LERGIGAN [PROMETHAZINE HYDROCHLORIDE] [Suspect]
     Active Substance: PROMETHAZINE HYDROCHLORIDE
     Dosage: 1250MG
     Route: 048
     Dates: start: 20180815, end: 20180815

REACTIONS (4)
  - Intentional self-injury [Unknown]
  - Depressed level of consciousness [Unknown]
  - Intentional overdose [Unknown]
  - Agitation [Unknown]

NARRATIVE: CASE EVENT DATE: 20180815
